FAERS Safety Report 4607295-X (Version None)
Quarter: 2005Q1

REPORT INFORMATION
  Report Type: 
  Country: None (occurrence: None)
  Receive Date: 20050309
  Receipt Date: 20050228
  Transmission Date: 20050727
  Serious: Yes (Hospitalization)
  Sender: FDA-Public Use
  Company Number: A-CH2005-08514

PATIENT
  Age: 60 Year
  Sex: Male
  Weight: 61 kg

DRUGS (5)
  1. TRACLEER [Suspect]
     Indication: PULMONARY HYPERTENSION
     Dosage: 62.5 MG, BID, ORAL; SEE IMAGE
     Route: 048
     Dates: start: 20050103, end: 20050101
  2. TRACLEER [Suspect]
     Indication: PULMONARY HYPERTENSION
     Dosage: 62.5 MG, BID, ORAL; SEE IMAGE
     Route: 048
     Dates: start: 20050101
  3. LASILACTON (FUROSEMIDE, SPIRONOLACTONE) [Concomitant]
  4. DILTIAZEM [Concomitant]
  5. SINTROM [Concomitant]

REACTIONS (7)
  - ANAPHYLACTOID REACTION [None]
  - DYSPNOEA [None]
  - MUSCLE SPASMS [None]
  - PAIN [None]
  - PYREXIA [None]
  - TACHYCARDIA [None]
  - TREMOR [None]
